FAERS Safety Report 13065602 (Version 1)
Quarter: 2016Q4

REPORT INFORMATION
  Report Type: Spontaneous
  Country: IT (occurrence: IT)
  Receive Date: 20161227
  Receipt Date: 20161227
  Transmission Date: 20170207
  Serious: Yes (Hospitalization)
  Sender: FDA-Public Use
  Company Number: IT-PFIZER INC-2016594814

PATIENT
  Age: 31 Year
  Sex: Female

DRUGS (3)
  1. GABAPENTIN. [Suspect]
     Active Substance: GABAPENTIN
     Indication: DRUG ABUSE
     Dosage: 15 MG, TOTAL
     Route: 048
     Dates: start: 20161202, end: 20161202
  2. LORAZEPAM. [Suspect]
     Active Substance: LORAZEPAM
     Indication: DRUG ABUSE
     Dosage: 25 MG, TOTAL
     Route: 048
     Dates: start: 20161202, end: 20161202
  3. PROZIN /00011902/ [Suspect]
     Active Substance: CHLORPROMAZINE HYDROCHLORIDE
     Indication: DRUG ABUSE
     Dosage: 2 G, TOTAL
     Route: 048
     Dates: start: 20161202, end: 20161202

REACTIONS (2)
  - Drug abuse [Unknown]
  - Sopor [Unknown]

NARRATIVE: CASE EVENT DATE: 20161202
